FAERS Safety Report 6087242-7 (Version None)
Quarter: 2009Q1

REPORT INFORMATION
  Report Type: 
  Country: None (occurrence: None)
  Receive Date: 20090223
  Receipt Date: 20090213
  Transmission Date: 20090719
  Serious: Yes (Life-Threatening, Hospitalization, Disabling, Other)
  Sender: FDA-Public Use
  Company Number: JP-ABBOTT-08P-087-0433643-00

PATIENT
  Sex: Female
  Weight: 80.1 kg

DRUGS (11)
  1. HUMIRA [Suspect]
     Indication: CROHN'S DISEASE
     Route: 058
     Dates: start: 20071213, end: 20071221
  2. IMURAN [Concomitant]
     Indication: CROHN'S DISEASE
     Route: 048
     Dates: start: 20060913, end: 20080115
  3. RACOL [Concomitant]
     Indication: CROHN'S DISEASE
     Route: 048
     Dates: start: 20070810, end: 20080115
  4. PENTASA [Concomitant]
     Indication: CROHN'S DISEASE
     Route: 048
     Dates: start: 20070214
  5. SALAZOPYRIN [Concomitant]
     Indication: CROHN'S DISEASE
     Dates: start: 20070214
  6. BIOTIN [Concomitant]
     Indication: VITAMIN SUPPLEMENTATION
     Route: 048
     Dates: start: 20051102, end: 20080115
  7. FERROMIA [Concomitant]
     Indication: ANAEMIA
     Route: 048
     Dates: start: 20061215, end: 20080115
  8. MIYA-BM [Concomitant]
     Indication: DIARRHOEA
     Route: 048
     Dates: start: 20051102, end: 20080115
  9. TAKEPRON [Concomitant]
     Indication: PROPHYLAXIS
     Route: 048
     Dates: start: 20060818, end: 20080115
  10. TAKEPRON [Concomitant]
     Indication: DUODENAL ULCER
  11. FOLIAMIN [Concomitant]
     Indication: VITAMIN SUPPLEMENTATION
     Route: 048
     Dates: start: 20070209, end: 20080115

REACTIONS (3)
  - ANAEMIA POSTOPERATIVE [None]
  - INTESTINAL PERFORATION [None]
  - PERITONITIS [None]
